FAERS Safety Report 4641989-5 (Version None)
Quarter: 2005Q2

REPORT INFORMATION
  Report Type: 
  Country: None (occurrence: None)
  Receive Date: 20050421
  Receipt Date: 20050401
  Transmission Date: 20051028
  Serious: Yes (Hospitalization, Other)
  Sender: FDA-Public Use
  Company Number: USA050494681

PATIENT
  Age: 65 Year
  Sex: Male

DRUGS (3)
  1. ZYPREXA [Suspect]
     Dosage: 20 MG DAY
     Route: 048
  2. CELEXA [Concomitant]
  3. PREVACID [Concomitant]

REACTIONS (2)
  - AORTIC VALVE REPLACEMENT [None]
  - EXTRAPYRAMIDAL DISORDER [None]
